FAERS Safety Report 9136752 (Version 1)
Quarter: 2013Q1

REPORT INFORMATION
  Report Type: Spontaneous
  Country: US (occurrence: US)
  Receive Date: 20130304
  Receipt Date: 20130304
  Transmission Date: 20140127
  Serious: No
  Sender: FDA-Public Use
  Company Number: US-ABBOTT-13P-163-1031939-00

PATIENT
  Age: 65 Year
  Sex: Male
  Weight: 86.26 kg

DRUGS (2)
  1. ANDROGEL [Suspect]
     Indication: BLOOD TESTOSTERONE DECREASED
     Dosage: 2 PUMPS PER DAY
     Dates: start: 2012
  2. ANDROGEL [Suspect]
     Dates: start: 2011, end: 2012

REACTIONS (6)
  - Drug administered at inappropriate site [Unknown]
  - Drug administered at inappropriate site [Unknown]
  - Application site erythema [Unknown]
  - Application site dryness [Unknown]
  - Application site pruritus [Unknown]
  - Application site rash [Unknown]
